FAERS Safety Report 5400237-9 (Version None)
Quarter: 2007Q3

REPORT INFORMATION
  Report Type: 
  Country: None (occurrence: None)
  Receive Date: 20070727
  Receipt Date: 20070727
  Transmission Date: 20080115
  Serious: No
  Sender: FDA-Public Use
  Company Number: None

PATIENT
  Age: 59 Year
  Sex: Male
  Weight: 127.0072 kg

DRUGS (1)
  1. AMNESTEEM [Suspect]
     Indication: ACNE
     Dosage: 40MG 2 PER DAY PO
     Route: 048
     Dates: start: 20060328, end: 20060403

REACTIONS (2)
  - BACK PAIN [None]
  - HYPOAESTHESIA [None]
